FAERS Safety Report 9241150 (Version 1)
Quarter: 2013Q2

REPORT INFORMATION
  Report Type: Spontaneous
  Country: JP (occurrence: JP)
  Receive Date: 20130419
  Receipt Date: 20130419
  Transmission Date: 20140414
  Serious: Yes (Other)
  Sender: FDA-Public Use
  Company Number: JP-BRISTOL-MYERS SQUIBB COMPANY-18785675

PATIENT
  Sex: 0

DRUGS (1)
  1. BARACLUDE TABS 0.5 MG [Suspect]

REACTIONS (1)
  - Pancytopenia [Unknown]
